FAERS Safety Report 5827648-1 (Version None)
Quarter: 2008Q3

REPORT INFORMATION
  Report Type: 
  Country: None (occurrence: None)
  Receive Date: 20080728
  Receipt Date: 20080717
  Transmission Date: 20090109
  Serious: Yes (Life-Threatening, Hospitalization)
  Sender: FDA-Public Use
  Company Number: GXKR2008AU06422

PATIENT
  Age: 53 Year
  Sex: Male

DRUGS (6)
  1. CLOZAPINE [Suspect]
     Indication: SCHIZOAFFECTIVE DISORDER
     Dosage: 700 MG, QD; 350 MG, QD
  2. OLANZAPINE [Suspect]
     Dosage: 10 MG, BID
  3. FERROUS SULFATE TAB [Suspect]
  4. LITHIUM CARBONATE [Concomitant]
  5. MULTIVITAMINS (ASCORBIC ACID, ERGOCALCIFEROL, FOLIC ACID, NICOTINAMIDE [Concomitant]
  6. PROTON PUMP INHIBITORS (NO INGREDIENTS/SUBSTANCES) [Concomitant]

REACTIONS (14)
  - ABDOMINAL DISTENSION [None]
  - ABDOMINAL PAIN [None]
  - CONSTIPATION [None]
  - DELIRIUM [None]
  - FAECALOMA [None]
  - HYPERHIDROSIS [None]
  - HYPOTENSION [None]
  - MENTAL DISORDER [None]
  - METABOLIC ACIDOSIS [None]
  - SEPSIS [None]
  - SOMNOLENCE [None]
  - TACHYCARDIA [None]
  - VOMITING [None]
  - WHITE BLOOD CELL COUNT INCREASED [None]
